FAERS Safety Report 8946937 (Version 1)
Quarter: 2012Q4

REPORT INFORMATION
  Report Type: 
  Country: CA (occurrence: CA)
  Receive Date: 20121205
  Receipt Date: 20121205
  Transmission Date: 20130627
  Serious: Yes (Other)
  Sender: FDA-Public Use
  Company Number: CA-ELI_LILLY_AND_COMPANY-CA201211007878

PATIENT
  Age: 92 Year
  Sex: Female

DRUGS (5)
  1. FORTEO [Suspect]
     Indication: OSTEOPOROSIS
     Dosage: 20 ug, qd
     Route: 058
     Dates: start: 20120827, end: 20121123
  2. CALCIUM [Concomitant]
     Dosage: UNK
     Route: 048
  3. IRBESARTAN [Concomitant]
     Dosage: UNK
  4. PANTOPRAZOL [Concomitant]
     Dosage: UNK
  5. AMLODIPINE [Concomitant]
     Dosage: UNK

REACTIONS (1)
  - Breast cancer [Unknown]
